FAERS Safety Report 5848025-3 (Version None)
Quarter: 2008Q3

REPORT INFORMATION
  Report Type: 
  Country: None (occurrence: None)
  Receive Date: 20080818
  Receipt Date: 20080808
  Transmission Date: 20090109
  Serious: Yes (Hospitalization)
  Sender: FDA-Public Use
  Company Number: US-JNJFOC-20071106283

PATIENT
  Sex: Female
  Weight: 52.62 kg

DRUGS (8)
  1. ORTHO EVRA [Suspect]
     Indication: DRUG USE FOR UNKNOWN INDICATION
     Route: 062
  2. LANTUS [Concomitant]
     Indication: DIABETES MELLITUS
     Route: 050
  3. HUMALOG [Concomitant]
     Indication: DIABETES MELLITUS
  4. ZESTRIL [Concomitant]
  5. AVAPRO [Concomitant]
  6. LIPITOR [Concomitant]
  7. PROTONIX [Concomitant]
  8. VIOKASE [Concomitant]

REACTIONS (2)
  - MYOCARDIAL INFARCTION [None]
  - MYOCARDITIS [None]
